FAERS Safety Report 13849804 (Version 1)
Quarter: 2017Q3

REPORT INFORMATION
  Report Type: Spontaneous
  Country: TN (occurrence: TN)
  Receive Date: 20170809
  Receipt Date: 20170809
  Transmission Date: 20171127
  Serious: Yes (Other)
  Sender: FDA-Public Use
  Company Number: TN-VISTAPHARM, INC.-VER201708-000289

PATIENT
  Age: 50 Year
  Sex: Male

DRUGS (4)
  1. TERBUTALIN [Suspect]
     Active Substance: TERBUTALINE
     Dates: start: 201504
  2. TERBUTALIN [Suspect]
     Active Substance: TERBUTALINE
     Indication: ASTHMA
  3. ALBUTEROL. [Suspect]
     Active Substance: ALBUTEROL
     Indication: ASTHMA
  4. ALBUTEROL. [Suspect]
     Active Substance: ALBUTEROL

REACTIONS (2)
  - Respiratory failure [Unknown]
  - Bronchospasm paradoxical [Unknown]
